FAERS Safety Report 6424461-1 (Version None)
Quarter: 2009Q4

REPORT INFORMATION
  Report Type: 
  Country: None (occurrence: None)
  Receive Date: 20091103
  Receipt Date: 20091022
  Transmission Date: 20100525
  Serious: Yes (Hospitalization)
  Sender: FDA-Public Use
  Company Number: DE-ELI_LILLY_AND_COMPANY-DE200910005717

PATIENT
  Sex: Female

DRUGS (6)
  1. GEMCITABINE HCL [Suspect]
     Indication: PANCREATIC CARCINOMA
     Dosage: 1000 MG/M2, WEEKLY (1/W)
     Route: 042
     Dates: start: 20070605, end: 20070911
  2. OTHER PHARMA COMPANY INV DRUG [Suspect]
     Indication: PANCREATIC CARCINOMA
     Dosage: 400 MG, DAILY (1/D)
     Route: 048
     Dates: start: 20070605, end: 20070926
  3. OMEP [Concomitant]
     Route: 048
     Dates: start: 20070529
  4. FRAXIPARIN [Concomitant]
     Route: 058
     Dates: start: 20070620
  5. L-THYROXIN [Concomitant]
     Route: 048
  6. LASIX [Concomitant]
     Route: 048
     Dates: start: 20070725

REACTIONS (2)
  - LYMPHOEDEMA [None]
  - PNEUMONIA STAPHYLOCOCCAL [None]
